FAERS Safety Report 5999961-9 (Version None)
Quarter: 2008Q4

REPORT INFORMATION
  Report Type: 
  Country: None (occurrence: None)
  Receive Date: 20081215
  Receipt Date: 20081211
  Transmission Date: 20090506
  Serious: Yes (Death, Hospitalization, Other)
  Sender: FDA-Public Use
  Company Number: PHHY2008JP28267

PATIENT
  Sex: Female

DRUGS (6)
  1. ICL670A ICL+DISTAB [Suspect]
     Indication: IRON OVERLOAD
     Dosage: 1000 MG, QD
     Route: 048
     Dates: start: 20080716, end: 20081101
  2. ADONA [Concomitant]
     Indication: PLATELET COUNT DECREASED
     Dosage: 90 MG/DAY
     Dates: start: 20050831, end: 20081101
  3. ALTAT [Concomitant]
     Indication: GASTRITIS
     Dosage: 150 MG
     Dates: start: 20050831, end: 20081101
  4. PROHEPARUM [Concomitant]
     Indication: LIVER DISORDER
     Dosage: 3 DF/DAY
     Dates: start: 20080125, end: 20081101
  5. NOVORAPID [Concomitant]
     Indication: DIABETES MELLITUS
     Dosage: UNK
     Dates: start: 20080709, end: 20081108
  6. CRESTOR [Concomitant]
     Dosage: 5 MG/DAY
     Dates: start: 20080717, end: 20081101

REACTIONS (6)
  - ATRIAL FIBRILLATION [None]
  - CARDIAC FAILURE CONGESTIVE [None]
  - FLUID OVERLOAD [None]
  - HAEMOCHROMATOSIS [None]
  - HAEMOGLOBIN DECREASED [None]
  - HYPERLIPIDAEMIA [None]
